FAERS Safety Report 17208911 (Version 1)
Quarter: 2019Q4

REPORT INFORMATION
  Report Type: Spontaneous
  Country: BG (occurrence: BG)
  Receive Date: 20191227
  Receipt Date: 20191227
  Transmission Date: 20200122
  Serious: Yes (Other)
  Sender: FDA-Public Use
  Company Number: BG-009507513-1912BGR008424

PATIENT
  Age: 50 Year

DRUGS (4)
  1. CLARITHROMYCIN. [Suspect]
     Active Substance: CLARITHROMYCIN
     Indication: BACTERIAL INFECTION
     Dosage: 500 MG, 2X PER DAY
  2. BETAMETHASONE DIPROPIONATE (+) BETAMETHASONE SODIUM PHOSPHATE [Suspect]
     Active Substance: BETAMETHASONE DIPROPIONATE\BETAMETHASONE SODIUM PHOSPHATE
     Dosage: UNK
     Route: 061
  3. ETHAMBUTOL [Suspect]
     Active Substance: ETHAMBUTOL HYDROCHLORIDE
     Indication: BACTERIAL INFECTION
     Dosage: 1200 MG, PER DAY
  4. RIFAMPIN. [Suspect]
     Active Substance: RIFAMPIN
     Indication: BACTERIAL INFECTION
     Dosage: 600 MG, PER DAY

REACTIONS (2)
  - Drug ineffective [Recovering/Resolving]
  - Infection [Recovering/Resolving]
